FAERS Safety Report 5927211-8 (Version None)
Quarter: 2008Q4

REPORT INFORMATION
  Report Type: 
  Country: None (occurrence: None)
  Receive Date: 20081022
  Receipt Date: 20081010
  Transmission Date: 20090506
  Serious: Yes (Hospitalization, Disabling, Other)
  Sender: FDA-Public Use
  Company Number: MX-PFIZER INC-2008064914

PATIENT
  Sex: Female
  Weight: 69 kg

DRUGS (2)
  1. CHAMPIX [Suspect]
     Indication: SMOKING CESSATION THERAPY
     Route: 048
     Dates: start: 20080722
  2. XYZAL [Concomitant]
     Indication: HYPERSENSITIVITY
     Dosage: DAILY DOSE:5MG-FREQ:DAILY
     Route: 048
     Dates: start: 20080725, end: 20080729

REACTIONS (7)
  - ABDOMINAL PAIN [None]
  - ASTHENIA [None]
  - BALANCE DISORDER [None]
  - COLITIS [None]
  - GASTRITIS [None]
  - SOMNOLENCE [None]
  - VERTIGO [None]
